FAERS Safety Report 4686604-X (Version None)
Quarter: 2005Q2

REPORT INFORMATION
  Report Type: 
  Country: None (occurrence: None)
  Receive Date: 20050607
  Receipt Date: 20050527
  Transmission Date: 20051028
  Serious: Yes (Life-Threatening, Other)
  Sender: FDA-Public Use
  Company Number: USA-2005-0020440

PATIENT
  Age: 28 Year
  Sex: Female

DRUGS (6)
  1. OXYCONTIN [Suspect]
     Indication: PAIN
     Dosage: SEE TEXT
     Dates: start: 20020101
  2. XOPENEX [Concomitant]
  3. ALLEGRA [Concomitant]
  4. BENADRYL [Concomitant]
  5. PREDNISONE [Concomitant]
  6. EPIPEN (EPINEPHRINE) [Concomitant]

REACTIONS (3)
  - DYSPNOEA [None]
  - MEDICATION ERROR [None]
  - SWOLLEN TONGUE [None]
